FAERS Safety Report 5167769-2 (Version None)
Quarter: 2006Q4

REPORT INFORMATION
  Report Type: 
  Country: None (occurrence: None)
  Receive Date: 20061204
  Receipt Date: 20061204
  Transmission Date: 20070319
  Serious: No
  Sender: FDA-Public Use
  Company Number: None

PATIENT
  Age: 42 Year
  Sex: Male
  Weight: 113.3993 kg

DRUGS (2)
  1. NIACIN [Suspect]
     Indication: BLOOD CHOLESTEROL INCREASED
     Dosage: 1 ONCE PO
     Route: 048
     Dates: start: 20061203, end: 20061203
  2. LISINOPRIL [Concomitant]

REACTIONS (2)
  - ERYTHEMA [None]
  - SKIN BURNING SENSATION [None]
